FAERS Safety Report 8122564-7 (Version None)
Quarter: 2012Q1

REPORT INFORMATION
  Report Type: 
  Country: None (occurrence: None)
  Receive Date: 20120206
  Receipt Date: 20120130
  Transmission Date: 20120608
  Serious: Yes (Hospitalization)
  Sender: FDA-Public Use
  Company Number: CIO12002027

PATIENT
  Sex: Female

DRUGS (4)
  1. PEPTO OR PEPTO-BISMOL, FORM/VERSION/LFAVOR UNKNOWN (BISMUTH SUBSALICYL [Suspect]
     Indication: ABDOMINAL DISTENSION
     Dosage: ORAL
     Route: 048
     Dates: start: 20110101, end: 20110101
  2. PEPTO OR PEPTO-BISMOL, FORM/VERSION/LFAVOR UNKNOWN (BISMUTH SUBSALICYL [Suspect]
     Indication: CONSTIPATION
     Dosage: ORAL
     Route: 048
     Dates: start: 20110101, end: 20110101
  3. PEPTO OR PEPTO-BISMOL, FORM/VERSION/LFAVOR UNKNOWN (BISMUTH SUBSALICYL [Suspect]
     Indication: GASTROENTERITIS VIRAL
     Dosage: ORAL
     Route: 048
     Dates: start: 20110101, end: 20110101
  4. PEPTO OR PEPTO-BISMOL, FORM/VERSION/LFAVOR UNKNOWN (BISMUTH SUBSALICYL [Suspect]
     Indication: ABDOMINAL DISCOMFORT
     Dosage: ORAL
     Route: 048
     Dates: start: 20110101, end: 20110101

REACTIONS (2)
  - APPENDICITIS PERFORATED [None]
  - SYMPTOM MASKED [None]
